FAERS Safety Report 21743181 (Version 1)
Quarter: 2022Q4

REPORT INFORMATION
  Report Type: Report from Study
  Country: US (occurrence: US)
  Receive Date: 20221217
  Receipt Date: 20221217
  Transmission Date: 20230112
  Serious: No
  Sender: FDA-Public Use
  Company Number: US-ABBVIE-4197974

PATIENT
  Age: 42 Year
  Sex: Female

DRUGS (1)
  1. HUMIRA [Suspect]
     Active Substance: ADALIMUMAB
     Indication: Rheumatoid arthritis
     Route: 058

REACTIONS (6)
  - Injection site pain [Recovered/Resolved]
  - Injection site hyperaesthesia [Recovered/Resolved]
  - Paraesthesia [Recovered/Resolved]
  - Adverse food reaction [Unknown]
  - Injection site pain [Recovered/Resolved]
  - Gluten free diet [Unknown]

NARRATIVE: CASE EVENT DATE: 20221028
